FAERS Safety Report 6262055-1 (Version None)
Quarter: 2009Q3

REPORT INFORMATION
  Report Type: 
  Country: None (occurrence: None)
  Receive Date: 20090709
  Receipt Date: 20090706
  Transmission Date: 20100115
  Serious: Yes (Hospitalization, Other)
  Sender: FDA-Public Use
  Company Number: US-ASTRAZENECA-2008UW27496

PATIENT
  Age: 15523 Day
  Sex: Female
  Weight: 107 kg

DRUGS (14)
  1. SEROQUEL [Suspect]
     Indication: MAJOR DEPRESSION
     Dosage: 100 MG TO 300 MG
     Route: 048
     Dates: start: 20050106, end: 20050725
  2. SEROQUEL [Suspect]
     Dosage: 200 MG TO 400 MG
     Route: 048
     Dates: start: 20051005, end: 20061102
  3. ABILIFY [Concomitant]
     Dosage: 10 TO 20 MG
     Dates: start: 20070503
  4. RISPERDAL [Concomitant]
     Dates: start: 20080101
  5. THORAZINE [Concomitant]
     Dates: start: 20070101
  6. LORAZEPAM [Concomitant]
     Dates: start: 20070607, end: 20071001
  7. CYMBALTA [Concomitant]
     Dates: start: 20060503, end: 20060701
  8. AMITRIPTYLINE HCL [Concomitant]
     Dates: start: 20060928, end: 20061028
  9. SERTRALINE [Concomitant]
     Dates: start: 20071229
  10. CLONAZEPAM [Concomitant]
     Dates: start: 20071116
  11. LEXAPRO [Concomitant]
     Dates: start: 20050723, end: 20070801
  12. HYDROXYZINE [Concomitant]
     Dates: start: 20061103, end: 20070427
  13. DIAZEPAM [Concomitant]
     Dates: start: 20070514, end: 20070709
  14. ZOLOFT [Concomitant]
     Dates: start: 20041116

REACTIONS (7)
  - ADVERSE DRUG REACTION [None]
  - HYSTERECTOMY [None]
  - INTESTINAL OBSTRUCTION [None]
  - NEPHROLITHIASIS [None]
  - PANCREATITIS [None]
  - SUICIDE ATTEMPT [None]
  - TYPE 1 DIABETES MELLITUS [None]
